FAERS Safety Report 21555390 (Version 1)
Quarter: 2022Q4

REPORT INFORMATION
  Report Type: Spontaneous
  Country: US (occurrence: None)
  Receive Date: 20221103
  Receipt Date: 20221103
  Transmission Date: 20230112
  Serious: Yes (Hospitalization)
  Sender: FDA-Public Use
  Company Number: None

PATIENT
  Age: 66 Year
  Sex: Male

DRUGS (2)
  1. DEFINITY RT [Suspect]
     Active Substance: PERFLUTREN
     Indication: Echocardiogram
     Route: 042
  2. DEFINITY RT [Suspect]
     Active Substance: PERFLUTREN
     Indication: Scan with contrast

REACTIONS (3)
  - Anaphylactic reaction [None]
  - Cardiac arrest [None]
  - Contrast media reaction [None]

NARRATIVE: CASE EVENT DATE: 20221102
